FAERS Safety Report 7019712-9 (Version None)
Quarter: 2010Q3

REPORT INFORMATION
  Report Type: 
  Country: None (occurrence: None)
  Receive Date: 20100929
  Receipt Date: 20100924
  Transmission Date: 20110219
  Serious: Yes (Other)
  Sender: FDA-Public Use
  Company Number: AU-PAR PHARMACEUTICAL, INC-2010SCPR001388

PATIENT

DRUGS (2)
  1. IBUPROFEN [Suspect]
     Indication: TENDONITIS
     Dosage: 400 MG TDS
     Route: 048
  2. PARACETAMOL [Concomitant]
     Indication: TENDONITIS
     Dosage: 1 G QID PRN
     Route: 065

REACTIONS (5)
  - ABDOMINAL DISCOMFORT [None]
  - CHEST DISCOMFORT [None]
  - FEELING HOT [None]
  - HYPERHIDROSIS [None]
  - PALPITATIONS [None]
